FAERS Safety Report 9444054 (Version 1)
Quarter: 2013Q3

REPORT INFORMATION
  Report Type: Spontaneous
  Country: US (occurrence: None)
  Receive Date: 20130806
  Receipt Date: 20130806
  Transmission Date: 20140515
  Serious: Yes (Life-Threatening)
  Sender: FDA-Public Use
  Company Number: None

PATIENT
  Age: 5 Day
  Sex: Male
  Weight: 3.31 kg

DRUGS (1)
  1. HYDROCODONE/ACETAMINOPHEN [Suspect]
     Indication: PROCEDURAL PAIN
     Dosage: 1 TABLET EVERY 4 HRS/AS NEE ORAL
     Route: 048
     Dates: start: 20130727, end: 20130731

REACTIONS (3)
  - Unresponsive to stimuli [None]
  - Skin discolouration [None]
  - Exposure during breast feeding [None]
